FAERS Safety Report 8600659-9 (Version None)
Quarter: 2012Q3

REPORT INFORMATION
  Report Type: 
  Country: None (occurrence: None)
  Receive Date: 20120817
  Receipt Date: 20120807
  Transmission Date: 20120928
  Serious: No
  Sender: FDA-Public Use
  Company Number: US-JNJFOC-20120804838

PATIENT
  Sex: Female
  Weight: 45.81 kg

DRUGS (5)
  1. HUMALOG [Concomitant]
     Indication: DIABETES MELLITUS
     Dosage: 1 UNIT PER 7 CARBS
     Route: 058
     Dates: start: 20050101
  2. FENTANYL-100 [Suspect]
     Indication: BACK PAIN
     Route: 062
     Dates: start: 20120601
  3. FENTANYL-100 [Suspect]
     Indication: CANCER PAIN
     Route: 062
     Dates: start: 20120601
  4. LOPRESSOR [Concomitant]
     Indication: HYPERTENSION
     Route: 048
  5. SYNTHROID [Concomitant]
     Indication: HYPOTHYROIDISM
     Route: 048

REACTIONS (3)
  - CYSTITIS [None]
  - WRONG TECHNIQUE IN DRUG USAGE PROCESS [None]
  - DRUG ADMINISTRATION ERROR [None]
